FAERS Safety Report 7126328-2 (Version None)
Quarter: 2010Q4

REPORT INFORMATION
  Report Type: 
  Country: None (occurrence: None)
  Receive Date: 20101112
  Receipt Date: 20101102
  Transmission Date: 20110411
  Serious: Yes (Other)
  Sender: FDA-Public Use
  Company Number: 2010US004511

PATIENT
  Age: 77 Year
  Sex: Male

DRUGS (11)
  1. VESICARE [Suspect]
     Indication: INCONTINENCE
     Dosage: 10 MG, /D, ORAL ; 5 MG, UID/QD, ORAL ; 10 MG, /D, ORAL
     Route: 048
  2. TAMSULOSIN HCL [Concomitant]
  3. PROPRANOLOL [Concomitant]
  4. DILTIAZEM [Concomitant]
  5. COUMADIN [Concomitant]
  6. PREDNISONE TAB [Concomitant]
  7. SYNTHROID [Concomitant]
  8. VITAMIN D NOS (VITAMIN D NOS) [Concomitant]
  9. CALCIUM (CALCIUM) [Concomitant]
  10. PRILOSEC (PRILOSEC) [Concomitant]
  11. BENADRYL [Concomitant]

REACTIONS (3)
  - CALCULUS BLADDER [None]
  - CONSTIPATION [None]
  - DYSGEUSIA [None]
